FAERS Safety Report 26005665 (Version 1)
Quarter: 2025Q4

REPORT INFORMATION
  Report Type: Spontaneous
  Country: EU (occurrence: EU)
  Receive Date: 20251106
  Receipt Date: 20251106
  Transmission Date: 20260117
  Serious: Yes (Hospitalization, Other)
  Sender: AUROBINDO
  Company Number: EU-AEMPS-1767532

PATIENT
  Age: 63 Year
  Sex: Male

DRUGS (4)
  1. ONDANSETRON [Suspect]
     Active Substance: ONDANSETRON
     Indication: Mantle cell lymphoma stage IV
     Dosage: 8 MILLIGRAM, TOTAL
     Route: 042
     Dates: start: 20250605, end: 20250605
  2. RITUXIMAB [Suspect]
     Active Substance: RITUXIMAB
     Indication: Mantle cell lymphoma stage IV
     Dosage: 765 MILLIGRAM,  1 MONTH
     Route: 042
     Dates: start: 20230605, end: 20250606
  3. CISPLATIN [Suspect]
     Active Substance: CISPLATIN
     Indication: Mantle cell lymphoma stage IV
     Dosage: 204 MILLIGRAM, 1 MONTH
     Route: 042
     Dates: start: 20250605, end: 20250605
  4. CYTARABINE [Suspect]
     Active Substance: CYTARABINE
     Indication: Mantle cell lymphoma stage IV
     Dosage: 4.08 MILLIGRAM, 1 MONTH
     Route: 042
     Dates: start: 20250605, end: 20250606

REACTIONS (1)
  - Angina unstable [Recovered/Resolved]

NARRATIVE: CASE EVENT DATE: 20250611
